FAERS Safety Report 17128786 (Version 1)
Quarter: 2019Q4

REPORT INFORMATION
  Report Type: Spontaneous
  Country: IT (occurrence: IT)
  Receive Date: 20191209
  Receipt Date: 20191209
  Transmission Date: 20200122
  Serious: Yes (Hospitalization, Other)
  Sender: FDA-Public Use
  Company Number: IT-PFIZER INC-2019525562

PATIENT
  Age: 81 Year
  Sex: Female

DRUGS (14)
  1. AMLODIPINE [Concomitant]
     Active Substance: AMLODIPINE BESYLATE
     Dosage: UNK
  2. DIURESIX [TORASEMIDE] [Concomitant]
     Dosage: UNK
  3. FORSTEO [Suspect]
     Active Substance: TERIPARATIDE
     Indication: OSTEOPOROSIS
     Dosage: UNK
     Dates: start: 201908
  4. PALEXIA [Concomitant]
     Active Substance: TAPENTADOL HYDROCHLORIDE
     Dosage: UNK
  5. CARDIOASPIRIN [Concomitant]
     Active Substance: ASPIRIN
     Dosage: UNK
  6. FOLINA [FOLIC ACID] [Concomitant]
     Active Substance: FOLIC ACID
     Dosage: UNK
  7. DOXAZOSIN [Concomitant]
     Active Substance: DOXAZOSIN MESYLATE
     Indication: BLOOD PRESSURE MEASUREMENT
     Dosage: UNK
  8. PANTOPRAZOLE [Concomitant]
     Active Substance: PANTOPRAZOLE
     Dosage: UNK
  9. METHOTREXATE SODIUM. [Suspect]
     Active Substance: METHOTREXATE SODIUM
     Dosage: 2 DF, MONTHLY (1 DOSAGE FORM, 2/M)
  10. DELTACORTENE [Concomitant]
     Active Substance: PREDNISONE
     Indication: BLOOD PRESSURE MEASUREMENT
     Dosage: UNK
  11. DIBASE [Concomitant]
     Active Substance: CHOLECALCIFEROL
     Dosage: UNK, MONTHLY (1/M)
  12. AIRTAL [Concomitant]
     Active Substance: ACECLOFENAC
     Dosage: UNK
  13. CORTISONE [Suspect]
     Active Substance: CORTISONE
     Dosage: UNK
  14. IDEOS [Concomitant]
     Active Substance: CALCIUM CARBONATE\CHOLECALCIFEROL
     Dosage: UNK

REACTIONS (3)
  - Femur fracture [Unknown]
  - Condition aggravated [Unknown]
  - Osteoporosis [Unknown]

NARRATIVE: CASE EVENT DATE: 20191106
